FAERS Safety Report 9698677 (Version 1)
Quarter: 2013Q4

REPORT INFORMATION
  Report Type: Spontaneous
  Country: US (occurrence: US)
  Receive Date: 20131120
  Receipt Date: 20131120
  Transmission Date: 20140711
  Serious: Yes (Hospitalization, Other)
  Sender: FDA-Public Use
  Company Number: US-GILEAD-2013-0088249

PATIENT
  Age: 81 Year
  Sex: Male

DRUGS (8)
  1. LETAIRIS [Suspect]
     Indication: PULMONARY ARTERIAL HYPERTENSION
     Route: 048
     Dates: start: 20131025
  2. ATENOLOL [Concomitant]
  3. FOLIC ACID [Concomitant]
  4. REVATIO [Concomitant]
  5. COMBIVENT [Concomitant]
  6. LIPITOR [Concomitant]
  7. ASPIRIN [Concomitant]
  8. NORVASC [Concomitant]

REACTIONS (1)
  - Pulmonary oedema [Recovered/Resolved]
